FAERS Safety Report 16025857 (Version 1)
Quarter: 2019Q1

REPORT INFORMATION
  Report Type: Spontaneous
  Country: FR (occurrence: FR)
  Receive Date: 20190302
  Receipt Date: 20190302
  Transmission Date: 20190418
  Serious: Yes (Hospitalization, Other)
  Sender: FDA-Public Use
  Company Number: FR-AUROBINDO-AUR-APL-2019-011428

PATIENT

DRUGS (2)
  1. GLICLAZIDE PROLONGED-RELEASE TABLET [Suspect]
     Active Substance: GLICLAZIDE
     Indication: DIABETES MELLITUS
     Dosage: 60 MILLIGRAM, ONCE A DAY
     Route: 048
  2. METFORMIN [Suspect]
     Active Substance: METFORMIN HYDROCHLORIDE
     Indication: DIABETES MELLITUS
     Dosage: 2100 MILLIGRAM, ONCE A DAY, 700 MG, TID
     Route: 048

REACTIONS (3)
  - Diabetes mellitus inadequate control [Recovered/Resolved]
  - Drug ineffective for unapproved indication [Recovered/Resolved]
  - Glycosylated haemoglobin increased [Recovered/Resolved]
